FAERS Safety Report 15778667 (Version 1)
Quarter: 2018Q4

REPORT INFORMATION
  Report Type: Spontaneous
  Country: CN (occurrence: CN)
  Receive Date: 20181231
  Receipt Date: 20181231
  Transmission Date: 20190205
  Serious: Yes (Other)
  Sender: FDA-Public Use
  Company Number: CN-ROCHE-2237580

PATIENT
  Age: 59 Year
  Sex: Female
  Weight: 58 kg

DRUGS (3)
  1. NEDAPLATIN [Suspect]
     Active Substance: NEDAPLATIN
     Indication: BREAST CANCER STAGE IV
     Route: 041
     Dates: start: 20180921, end: 20180923
  2. DOCETAXEL. [Suspect]
     Active Substance: DOCETAXEL
     Indication: BREAST CANCER STAGE IV
     Route: 041
     Dates: start: 20180921, end: 20180921
  3. HERCEPTIN [Suspect]
     Active Substance: TRASTUZUMAB
     Indication: BREAST CANCER STAGE IV
     Route: 041
     Dates: start: 20180921, end: 20180921

REACTIONS (1)
  - Bone marrow failure [Recovering/Resolving]

NARRATIVE: CASE EVENT DATE: 20181016
